FAERS Safety Report 24531942 (Version 2)
Quarter: 2024Q4

REPORT INFORMATION
  Report Type: Spontaneous
  Country: JP (occurrence: JP)
  Receive Date: 20241022
  Receipt Date: 20241025
  Transmission Date: 20250115
  Serious: No
  Sender: UCB
  Company Number: JP-UCBJ-CD202409758UCBPHAPROD

PATIENT
  Age: 8 Year
  Sex: Female

DRUGS (6)
  1. FINTEPLA [Suspect]
     Active Substance: FENFLURAMINE
     Indication: Severe myoclonic epilepsy of infancy
     Dosage: UNK
     Route: 048
     Dates: start: 20230703
  2. VALPROATE SODIUM [Concomitant]
     Active Substance: VALPROATE SODIUM
     Indication: Product used for unknown indication
     Dosage: UNK
  3. TOPIRAMATE [Concomitant]
     Active Substance: TOPIRAMATE
     Indication: Product used for unknown indication
     Dosage: UNK
  4. MIDAZOLAM HYDROCHLORIDE [Concomitant]
     Active Substance: MIDAZOLAM HYDROCHLORIDE
     Indication: Product used for unknown indication
     Dosage: UNK
  5. ETHOSUXIMIDE [Concomitant]
     Active Substance: ETHOSUXIMIDE
     Indication: Product used for unknown indication
     Dosage: UNK
  6. LEVOCARNITINE HYDROCHLORIDE [Concomitant]
     Active Substance: LEVOCARNITINE HYDROCHLORIDE
     Indication: Product used for unknown indication
     Dosage: UNK

REACTIONS (1)
  - Haemophilus infection [Recovered/Resolved]
